FAERS Safety Report 6230400 (Version 2)
Quarter: 2014Q2

REPORT INFORMATION
  Report Type: Spontaneous
  Country: IE (occurrence: IE)
  Receive Date: 20070205
  Receipt Date: 20140529
  Transmission Date: 20141212
  Serious: Yes (Other)
  Sender: FDA-Public Use
  Company Number: PHBS2007GB01962

PATIENT
  Sex: Female

DRUGS (2)
  1. PAMIDRONATE DISODIUM [Suspect]
     Indication: BREAST CANCER METASTATIC
     Route: 065
  2. ZOLEDRONIC ACID [Suspect]
     Indication: BREAST CANCER METASTATIC
     Route: 065

REACTIONS (4)
  - Osteonecrosis of jaw [Unknown]
  - Pain in jaw [Unknown]
  - Ischaemia [Unknown]
  - Impaired healing [Unknown]
